FAERS Safety Report 7824265-9 (Version None)
Quarter: 2011Q4

REPORT INFORMATION
  Report Type: 
  Country: None (occurrence: None)
  Receive Date: 20111018
  Receipt Date: 20111018
  Transmission Date: 20120403
  Serious: Yes (Death)
  Sender: FDA-Public Use
  Company Number: None

PATIENT
  Sex: Male
  Weight: 86.9 kg

DRUGS (1)
  1. REVLIMID [Suspect]
     Indication: MYELODYSPLASTIC SYNDROME
     Dosage: 50MG PO QD
     Route: 048
     Dates: start: 20110704, end: 20110906

REACTIONS (3)
  - BLOOD CREATININE INCREASED [None]
  - LOBAR PNEUMONIA [None]
  - LUNG INFILTRATION [None]
